FAERS Safety Report 8571998-5 (Version None)
Quarter: 2012Q3

REPORT INFORMATION
  Report Type: 
  Country: None (occurrence: None)
  Receive Date: 20120806
  Receipt Date: 20120801
  Transmission Date: 20120928
  Serious: Yes (Hospitalization)
  Sender: FDA-Public Use
  Company Number: MX-BRISTOL-MYERS SQUIBB COMPANY-16219909

PATIENT
  Age: 30 Year
  Sex: Female
  Weight: 36 kg

DRUGS (3)
  1. CISPLATIN [Suspect]
     Indication: HEAD AND NECK CANCER
     Dosage: LAST DOSE:20OCT11
     Route: 042
     Dates: start: 20111020
  2. FLUOROURACIL [Suspect]
     Indication: HEAD AND NECK CANCER
     Dosage: DAY 1-4 LAST DOSE:23OCT11
     Route: 042
     Dates: start: 20111020
  3. FLUOROURACIL [Suspect]
     Indication: HEAD AND NECK CANCER
     Dosage: LOADING DOSE:400MG/M2 250MG/M2 WK DY1,8,15 RCT DOSE:3NV11 RESTR:26OT11 250,100MG,1000MG
     Route: 042
     Dates: start: 20111020

REACTIONS (3)
  - HYPOKALAEMIA [None]
  - VOMITING [None]
  - MUCOSAL INFLAMMATION [None]
